FAERS Safety Report 4496967-6 (Version None)
Quarter: 2004Q4

REPORT INFORMATION
  Report Type: 
  Country: None (occurrence: None)
  Receive Date: 20041109
  Receipt Date: 20041104
  Transmission Date: 20050328
  Serious: Yes (Life-Threatening, Hospitalization)
  Sender: FDA-Public Use
  Company Number: US-MERCK-0411USA00713

PATIENT
  Age: 47 Year
  Sex: Male

DRUGS (3)
  1. VIOXX [Suspect]
     Indication: ARTHRALGIA
     Route: 048
     Dates: start: 20020101, end: 20020101
  2. ASPIRIN [Concomitant]
     Route: 065
  3. PROZAC [Concomitant]
     Route: 065

REACTIONS (1)
  - THROMBOSIS [None]
